FAERS Safety Report 9353789 (Version 1)
Quarter: 2013Q2

REPORT INFORMATION
  Report Type: Spontaneous
  Country: FR (occurrence: FR)
  Receive Date: 20130618
  Receipt Date: 20130618
  Transmission Date: 20140414
  Serious: Yes (Other)
  Sender: FDA-Public Use
  Company Number: FR-009507513-1306FRA004216

PATIENT
  Age: 30 Year
  Sex: Male

DRUGS (1)
  1. TIENAM 500MG/500MG, POUDRE POUR PERFUSION [Suspect]
     Dosage: 1 DF, ONCE
     Route: 041
     Dates: start: 20130513, end: 20130513

REACTIONS (1)
  - Purpura [Recovered/Resolved]
